FAERS Safety Report 24382633 (Version 7)
Quarter: 2025Q2

REPORT INFORMATION
  Report Type: Report from Study
  Country: CN (occurrence: CN)
  Receive Date: 20241001
  Receipt Date: 20250529
  Transmission Date: 20250716
  Serious: Yes (Hospitalization, Other)
  Sender: ROCHE
  Company Number: CN-ROCHE-10000005433

PATIENT
  Age: 56 Year
  Sex: Male
  Weight: 82 kg

DRUGS (102)
  1. POLIVY [Suspect]
     Active Substance: POLATUZUMAB VEDOTIN-PIIQ
     Indication: Diffuse large B-cell lymphoma
     Dosage: FREQUENCY: ONCE
     Route: 042
     Dates: start: 20240528, end: 20240528
  2. POLIVY [Suspect]
     Active Substance: POLATUZUMAB VEDOTIN-PIIQ
     Route: 042
     Dates: start: 20240731, end: 20240731
  3. POLIVY [Suspect]
     Active Substance: POLATUZUMAB VEDOTIN-PIIQ
     Route: 042
     Dates: start: 20240830, end: 20240830
  4. PIRARUBICIN HYDROCHLORIDE [Suspect]
     Active Substance: PIRARUBICIN HYDROCHLORIDE
     Indication: Diffuse large B-cell lymphoma
     Route: 042
     Dates: start: 20240604, end: 20240604
  5. PIRARUBICIN HYDROCHLORIDE [Suspect]
     Active Substance: PIRARUBICIN HYDROCHLORIDE
     Route: 042
     Dates: start: 20240605, end: 20240605
  6. PIRARUBICIN HYDROCHLORIDE [Suspect]
     Active Substance: PIRARUBICIN HYDROCHLORIDE
     Route: 042
     Dates: start: 20240801, end: 20240806
  7. PIRARUBICIN HYDROCHLORIDE [Suspect]
     Active Substance: PIRARUBICIN HYDROCHLORIDE
     Indication: Diffuse large B-cell lymphoma
     Route: 042
     Dates: start: 20240604, end: 20240604
  8. PIRARUBICIN HYDROCHLORIDE [Suspect]
     Active Substance: PIRARUBICIN HYDROCHLORIDE
     Route: 042
     Dates: start: 20240629, end: 20240701
  9. PIRARUBICIN HYDROCHLORIDE [Suspect]
     Active Substance: PIRARUBICIN HYDROCHLORIDE
     Route: 042
     Dates: start: 20240801, end: 20240803
  10. PIRARUBICIN HYDROCHLORIDE [Suspect]
     Active Substance: PIRARUBICIN HYDROCHLORIDE
     Route: 042
     Dates: start: 20240605, end: 20240605
  11. PIRARUBICIN HYDROCHLORIDE [Suspect]
     Active Substance: PIRARUBICIN HYDROCHLORIDE
     Route: 042
     Dates: start: 20240831, end: 20240902
  12. RITUXIMAB [Suspect]
     Active Substance: RITUXIMAB
     Indication: Diffuse large B-cell lymphoma
     Route: 042
     Dates: start: 20240529, end: 20240529
  13. RITUXIMAB [Suspect]
     Active Substance: RITUXIMAB
     Route: 042
     Dates: start: 20240627, end: 20240627
  14. RITUXIMAB [Suspect]
     Active Substance: RITUXIMAB
     Route: 042
     Dates: start: 20240731, end: 20240731
  15. RITUXIMAB [Suspect]
     Active Substance: RITUXIMAB
     Route: 042
     Dates: start: 20240830, end: 20240830
  16. CYCLOPHOSPHAMIDE [Suspect]
     Active Substance: CYCLOPHOSPHAMIDE
     Indication: Diffuse large B-cell lymphoma
     Route: 042
     Dates: start: 20240531, end: 20240531
  17. CYCLOPHOSPHAMIDE [Suspect]
     Active Substance: CYCLOPHOSPHAMIDE
     Route: 042
     Dates: start: 20240602, end: 20240602
  18. CYCLOPHOSPHAMIDE [Suspect]
     Active Substance: CYCLOPHOSPHAMIDE
     Route: 042
     Dates: start: 20240801, end: 20240801
  19. CYCLOPHOSPHAMIDE [Suspect]
     Active Substance: CYCLOPHOSPHAMIDE
     Route: 042
     Dates: start: 20240831, end: 20240831
  20. VINCRISTINE [Suspect]
     Active Substance: VINCRISTINE
     Indication: Diffuse large B-cell lymphoma
     Route: 042
     Dates: start: 20240531, end: 20240531
  21. CILASTATIN SODIUM\IMIPENEM [Suspect]
     Active Substance: CILASTATIN SODIUM\IMIPENEM
     Indication: Diffuse large B-cell lymphoma
     Route: 042
  22. CILASTATIN SODIUM\IMIPENEM [Suspect]
     Active Substance: CILASTATIN SODIUM\IMIPENEM
     Route: 042
     Dates: end: 20240617
  23. CILASTATIN SODIUM\IMIPENEM [Suspect]
     Active Substance: CILASTATIN SODIUM\IMIPENEM
     Route: 042
     Dates: start: 20240911, end: 20240915
  24. MOXIFLOXACIN HYDROCHLORIDE [Suspect]
     Active Substance: MOXIFLOXACIN HYDROCHLORIDE
     Indication: Diffuse large B-cell lymphoma
     Route: 042
  25. MOXIFLOXACIN HYDROCHLORIDE [Suspect]
     Active Substance: MOXIFLOXACIN HYDROCHLORIDE
     Route: 042
     Dates: end: 20240821
  26. MOXIFLOXACIN HYDROCHLORIDE [Suspect]
     Active Substance: MOXIFLOXACIN HYDROCHLORIDE
     Route: 042
     Dates: start: 20240821, end: 20240827
  27. MOXIFLOXACIN HYDROCHLORIDE [Suspect]
     Active Substance: MOXIFLOXACIN HYDROCHLORIDE
     Route: 042
     Dates: start: 20240909, end: 20240913
  28. PREDNISONE [Suspect]
     Active Substance: PREDNISONE
     Indication: Diffuse large B-cell lymphoma
     Route: 042
  29. PREDNISONE [Suspect]
     Active Substance: PREDNISONE
     Route: 042
     Dates: end: 20240806
  30. DOXORUBICIN [Suspect]
     Active Substance: DOXORUBICIN
     Indication: Diffuse large B-cell lymphoma
     Route: 042
     Dates: start: 20240604, end: 20240604
  31. DOXORUBICIN [Suspect]
     Active Substance: DOXORUBICIN
     Route: 042
     Dates: start: 20240605, end: 20240605
  32. Riboflavin sodium phosphate for injection [Concomitant]
     Route: 042
     Dates: start: 20240511, end: 20240516
  33. Riboflavin sodium phosphate for injection [Concomitant]
     Route: 042
     Dates: start: 20240511, end: 20240516
  34. Riboflavin sodium phosphate for injection [Concomitant]
     Route: 042
     Dates: start: 20240511, end: 20240516
  35. Monoammonium glycyrrhizinate cysteine sodium chloride inj [Concomitant]
     Route: 042
     Dates: start: 20240511, end: 20240514
  36. Monoammonium glycyrrhizinate cysteine sodium chloride inj [Concomitant]
     Route: 042
     Dates: start: 20240511, end: 20240514
  37. Monoammonium glycyrrhizinate cysteine sodium chloride inj [Concomitant]
     Route: 042
     Dates: start: 20240511, end: 20240514
  38. AMINO ACIDS, SOURCE UNSPECIFIED [Concomitant]
     Active Substance: AMINO ACIDS, SOURCE UNSPECIFIED
     Route: 042
     Dates: start: 20240512, end: 20240513
  39. AMINO ACIDS, SOURCE UNSPECIFIED [Concomitant]
     Active Substance: AMINO ACIDS, SOURCE UNSPECIFIED
     Route: 042
     Dates: start: 20240513, end: 20240516
  40. Live Bacillus licheniformis granules [Concomitant]
     Route: 048
     Dates: start: 20240513, end: 20240514
  41. Live Bacillus licheniformis granules [Concomitant]
     Route: 048
     Dates: start: 20240609, end: 20240613
  42. Live Bacillus licheniformis granules [Concomitant]
     Route: 048
     Dates: start: 20240613, end: 20240617
  43. HERBALS [Concomitant]
     Active Substance: HERBALS
     Route: 042
     Dates: start: 20240514, end: 20240516
  44. MAGNESIUM ISOGLYCYRRHIZINATE [Concomitant]
     Active Substance: MAGNESIUM ISOGLYCYRRHIZINATE
     Route: 042
     Dates: start: 20240522, end: 20240607
  45. MAGNESIUM ISOGLYCYRRHIZINATE [Concomitant]
     Active Substance: MAGNESIUM ISOGLYCYRRHIZINATE
     Route: 042
     Dates: start: 20240822, end: 20240913
  46. tathion injection [Concomitant]
     Route: 042
     Dates: start: 20240522, end: 20240607
  47. Hydroprednisone inj [Concomitant]
     Route: 042
     Dates: start: 20240530, end: 20240607
  48. Hydroprednisone inj [Concomitant]
     Route: 042
     Dates: start: 20240607, end: 20240609
  49. Hydroprednisone inj [Concomitant]
     Route: 042
     Dates: start: 20240522, end: 20240530
  50. POTASSIUM CHLORIDE [Concomitant]
     Active Substance: POTASSIUM CHLORIDE
     Route: 042
     Dates: start: 20240522, end: 20240607
  51. POTASSIUM CHLORIDE [Concomitant]
     Active Substance: POTASSIUM CHLORIDE
     Route: 042
     Dates: start: 20240609, end: 20240617
  52. POTASSIUM CHLORIDE [Concomitant]
     Active Substance: POTASSIUM CHLORIDE
     Route: 042
     Dates: start: 20240810, end: 20240813
  53. POTASSIUM CHLORIDE [Concomitant]
     Active Substance: POTASSIUM CHLORIDE
     Route: 042
     Dates: start: 20240813, end: 20240816
  54. POTASSIUM CHLORIDE [Concomitant]
     Active Substance: POTASSIUM CHLORIDE
     Route: 042
     Dates: start: 20240824, end: 20240828
  55. POTASSIUM CHLORIDE [Concomitant]
     Active Substance: POTASSIUM CHLORIDE
     Route: 042
     Dates: start: 20240914, end: 20240914
  56. POTASSIUM CHLORIDE [Concomitant]
     Active Substance: POTASSIUM CHLORIDE
     Route: 042
     Dates: start: 20240822
  57. POTASSIUM CHLORIDE [Concomitant]
     Active Substance: POTASSIUM CHLORIDE
     Route: 042
     Dates: start: 20240608, end: 20240608
  58. Calcium gluconate sodium chloride injection [Concomitant]
     Route: 042
     Dates: start: 20240524, end: 20240607
  59. Calcium gluconate sodium chloride injection [Concomitant]
     Route: 042
     Dates: start: 20240822, end: 20240906
  60. ondansetron hydrochloride injection [Concomitant]
     Route: 042
     Dates: start: 20240531, end: 20240601
  61. ondansetron hydrochloride injection [Concomitant]
     Route: 042
     Dates: start: 20240801, end: 20240806
  62. ondansetron hydrochloride injection [Concomitant]
     Route: 042
     Dates: start: 20240831, end: 20240902
  63. ondansetron hydrochloride injection [Concomitant]
     Route: 042
     Dates: start: 20240602, end: 20240602
  64. ondansetron hydrochloride injection [Concomitant]
     Route: 042
     Dates: start: 20240604, end: 20240605
  65. Esomeprazole magnesium enteric capsule [Concomitant]
     Route: 048
     Dates: start: 20240606, end: 20240617
  66. Esomeprazole magnesium enteric capsule [Concomitant]
     Route: 048
     Dates: start: 20240801, end: 20240806
  67. LEVOFLOXACIN [Concomitant]
     Active Substance: LEVOFLOXACIN
     Route: 042
     Dates: start: 20240608, end: 20240608
  68. Recombinant human granulocyte colony stimulating factor injection [Concomitant]
     Route: 058
     Dates: start: 20240609, end: 20240617
  69. Recombinant human granulocyte colony stimulating factor injection [Concomitant]
     Route: 058
     Dates: start: 20240806, end: 20240806
  70. Recombinant human granulocyte colony stimulating factor injection [Concomitant]
     Route: 058
     Dates: start: 20240810, end: 20240816
  71. Recombinant human granulocyte colony stimulating factor injection [Concomitant]
     Route: 058
     Dates: start: 20240911, end: 20240915
  72. Recombinant human granulocyte colony stimulating factor injection [Concomitant]
     Route: 058
     Dates: start: 20240909, end: 20240909
  73. MONTMORILLONITE [Concomitant]
     Active Substance: MONTMORILLONITE
     Route: 048
     Dates: start: 20240609, end: 20240617
  74. injection liquid of gentamicin [Concomitant]
     Route: 048
     Dates: start: 20240609, end: 20240613
  75. AMMONIUM GLYCYRRHIZATE\GLYCINE\RACEMETHIONINE [Concomitant]
     Active Substance: AMMONIUM GLYCYRRHIZATE\GLYCINE\RACEMETHIONINE
     Dosage: 4 CAPSULE
     Route: 048
     Dates: start: 20240613, end: 20240613
  76. AMMONIUM GLYCYRRHIZATE\GLYCINE\RACEMETHIONINE [Concomitant]
     Active Substance: AMMONIUM GLYCYRRHIZATE\GLYCINE\RACEMETHIONINE
     Dosage: 20 CAPSULE
     Route: 048
     Dates: start: 20240812
  77. AMMONIUM GLYCYRRHIZATE\GLYCINE\RACEMETHIONINE [Concomitant]
     Active Substance: AMMONIUM GLYCYRRHIZATE\GLYCINE\RACEMETHIONINE
     Dosage: 3CAPSULE
     Route: 048
     Dates: start: 20240913, end: 20240924
  78. Fluconazole sodium chloride injection [Concomitant]
     Route: 042
     Dates: start: 20240613, end: 20240617
  79. Multivitamins for injection (12) [Concomitant]
     Route: 042
     Dates: start: 20240526, end: 20240628
  80. DEXAMETHASONE SODIUM PHOSPHATE [Concomitant]
     Active Substance: DEXAMETHASONE SODIUM PHOSPHATE
     Route: 042
     Dates: start: 20240801, end: 20240806
  81. DEXAMETHASONE SODIUM PHOSPHATE [Concomitant]
     Active Substance: DEXAMETHASONE SODIUM PHOSPHATE
     Route: 042
     Dates: start: 20240731, end: 20240731
  82. DEXAMETHASONE SODIUM PHOSPHATE [Concomitant]
     Active Substance: DEXAMETHASONE SODIUM PHOSPHATE
     Route: 042
     Dates: start: 20240830, end: 20240830
  83. DEXAMETHASONE SODIUM PHOSPHATE [Concomitant]
     Active Substance: DEXAMETHASONE SODIUM PHOSPHATE
     Route: 042
     Dates: start: 20240831, end: 20240905
  84. diphenhydramine hydrochloride inj [Concomitant]
     Route: 042
     Dates: start: 20240731, end: 20240731
  85. diphenhydramine hydrochloride inj [Concomitant]
     Route: 042
     Dates: start: 20240830, end: 20240830
  86. CEFOPERAZONE SODIUM\SULBACTAM SODIUM [Concomitant]
     Active Substance: CEFOPERAZONE SODIUM\SULBACTAM SODIUM
     Route: 042
     Dates: start: 20240810, end: 20240816
  87. CEFOPERAZONE SODIUM\SULBACTAM SODIUM [Concomitant]
     Active Substance: CEFOPERAZONE SODIUM\SULBACTAM SODIUM
     Route: 042
     Dates: start: 20240810, end: 20240816
  88. CEFOPERAZONE SODIUM\SULBACTAM SODIUM [Concomitant]
     Active Substance: CEFOPERAZONE SODIUM\SULBACTAM SODIUM
     Route: 042
     Dates: start: 20240916, end: 20240918
  89. CEFOPERAZONE SODIUM\SULBACTAM SODIUM [Concomitant]
     Active Substance: CEFOPERAZONE SODIUM\SULBACTAM SODIUM
     Route: 042
     Dates: start: 20240918, end: 20240924
  90. Deoxynucleotide sodium injection [Concomitant]
     Route: 042
     Dates: start: 20240821
  91. Deoxynucleotide sodium injection [Concomitant]
     Route: 042
     Dates: start: 20240821, end: 20240821
  92. Furosemide sodium chloride inj [Concomitant]
     Route: 042
     Dates: start: 20240827, end: 20240827
  93. Furosemide sodium chloride inj [Concomitant]
     Route: 042
     Dates: start: 20240610, end: 20240610
  94. Furosemide sodium chloride inj [Concomitant]
     Route: 048
     Dates: start: 20240822, end: 20240827
  95. Furosemide sodium chloride inj [Concomitant]
     Route: 042
     Dates: start: 20240612, end: 20240612
  96. Hepatocyte growth hormone enteric-coated capsules [Concomitant]
     Route: 042
     Dates: start: 20240904, end: 20240924
  97. SPIRONOLACTONE [Concomitant]
     Active Substance: SPIRONOLACTONE
     Route: 048
     Dates: start: 20240822
  98. RECOMBINANT HUMAN THROMBOPOIETIN [Concomitant]
     Active Substance: RECOMBINANT HUMAN THROMBOPOIETIN
     Route: 058
     Dates: start: 20240611, end: 20240616
  99. RECOMBINANT HUMAN THROMBOPOIETIN [Concomitant]
     Active Substance: RECOMBINANT HUMAN THROMBOPOIETIN
     Route: 058
     Dates: start: 20240608, end: 20240608
  100. DEXTROSE [Concomitant]
     Active Substance: DEXTROSE MONOHYDRATE
     Route: 042
     Dates: start: 20240609, end: 20240617
  101. DEXTROSE [Concomitant]
     Active Substance: DEXTROSE MONOHYDRATE
     Route: 042
     Dates: start: 20240522, end: 20240607
  102. DEXTROSE [Concomitant]
     Active Substance: DEXTROSE MONOHYDRATE
     Route: 042
     Dates: start: 20240608, end: 20240608

REACTIONS (5)
  - Myelosuppression [Recovered/Resolved]
  - Sepsis [Recovered/Resolved]
  - Upper respiratory tract infection [Recovered/Resolved]
  - Febrile neutropenia [Recovered/Resolved]
  - Neutrophil count decreased [Recovered/Resolved with Sequelae]

NARRATIVE: CASE EVENT DATE: 20240607
